FAERS Safety Report 24316873 (Version 1)
Quarter: 2024Q3

REPORT INFORMATION
  Report Type: Spontaneous
  Country: US (occurrence: US)
  Receive Date: 20240913
  Receipt Date: 20240913
  Transmission Date: 20241017
  Serious: No
  Sender: SANOFI AVENTIS
  Company Number: US-SA-2024SA263241

PATIENT
  Sex: Female
  Weight: 58.41 kg

DRUGS (5)
  1. DUPIXENT [Suspect]
     Active Substance: DUPILUMAB
     Dosage: 600 MG, 1X
  2. PROGESTERONE [Concomitant]
     Active Substance: PROGESTERONE
  3. VERZENIO [Concomitant]
     Active Substance: ABEMACICLIB
  4. EXEMESTANE [Concomitant]
     Active Substance: EXEMESTANE
  5. MELOXICAM [Concomitant]
     Active Substance: MELOXICAM

REACTIONS (1)
  - Maternal exposure during pregnancy [Unknown]
